FAERS Safety Report 4988901-7 (Version None)
Quarter: 2006Q2

REPORT INFORMATION
  Report Type: 
  Country: None (occurrence: None)
  Receive Date: 20060425
  Receipt Date: 20060413
  Transmission Date: 20061013
  Serious: Yes (Hospitalization)
  Sender: FDA-Public Use
  Company Number: 196844

PATIENT
  Age: 52 Year
  Sex: Male
  Weight: 90.2658 kg

DRUGS (13)
  1. AVONEX [Suspect]
     Indication: MULTIPLE SCLEROSIS
     Dosage: 30 UG QW IM
     Route: 030
     Dates: start: 20010901, end: 20040201
  2. AVONEX [Suspect]
     Indication: MULTIPLE SCLEROSIS
     Dosage: 30 UG QW IM
     Route: 030
     Dates: start: 20040201, end: 20060301
  3. TRENTAL [Concomitant]
  4. NOVOLIN 70/30 [Concomitant]
  5. ACTOS [Concomitant]
  6. METFORMIN HYDROCHLORIDE [Concomitant]
  7. LIPITOR [Concomitant]
  8. NORVASC [Concomitant]
  9. COZAAR [Concomitant]
  10. DARVOCET [Concomitant]
  11. MECLIZINE HCL [Concomitant]
  12. ASPIRIN [Concomitant]
  13. PLAVIX [Concomitant]

REACTIONS (12)
  - ANGINA PECTORIS [None]
  - CORONARY ARTERY DISEASE [None]
  - CORONARY ARTERY OCCLUSION [None]
  - DIFFICULTY IN WALKING [None]
  - INCISION SITE HAEMORRHAGE [None]
  - INFLUENZA LIKE ILLNESS [None]
  - MUSCULAR WEAKNESS [None]
  - MYALGIA [None]
  - PERIPHERAL VASCULAR DISORDER [None]
  - POST PROCEDURAL HAEMORRHAGE [None]
  - THROAT TIGHTNESS [None]
  - THROMBOCYTOPENIA [None]
